FAERS Safety Report 6712810-6 (Version None)
Quarter: 2010Q2

REPORT INFORMATION
  Report Type: 
  Country: None (occurrence: None)
  Receive Date: 20100506
  Receipt Date: 20091015
  Transmission Date: 20101027
  Serious: No
  Sender: FDA-Public Use
  Company Number: A0812046A

PATIENT
  Sex: Female

DRUGS (1)
  1. AUGMENTIN '125' [Suspect]
     Indication: DRUG USE FOR UNKNOWN INDICATION

REACTIONS (2)
  - SWOLLEN TONGUE [None]
  - TONGUE PRURITUS [None]
